FAERS Safety Report 9836196 (Version 4)
Quarter: 2014Q2

REPORT INFORMATION
  Report Type: Spontaneous
  Country: CA (occurrence: CA)
  Receive Date: 20140123
  Receipt Date: 20140508
  Transmission Date: 20141212
  Serious: Yes (Hospitalization)
  Sender: FDA-Public Use
  Company Number: CA-ROCHE-1321426

PATIENT
  Age: 50 Year
  Sex: Male

DRUGS (7)
  1. XOLAIR [Suspect]
     Indication: ASTHMA
     Route: 058
     Dates: start: 20121204
  2. XOLAIR [Suspect]
     Route: 058
     Dates: start: 20131105
  3. XOLAIR [Suspect]
     Route: 058
     Dates: start: 20131218
  4. XOLAIR [Suspect]
     Route: 058
     Dates: start: 20140120
  5. XOLAIR [Suspect]
     Route: 058
     Dates: start: 20140327
  6. XOLAIR [Suspect]
     Route: 058
     Dates: start: 20140429
  7. TAMIFLU [Concomitant]

REACTIONS (11)
  - Lower limb fracture [Unknown]
  - Fall [Unknown]
  - Pain [Not Recovered/Not Resolved]
  - Abdominal discomfort [Unknown]
  - Influenza [Recovered/Resolved]
  - Back pain [Unknown]
  - Blood pressure increased [Not Recovered/Not Resolved]
  - Body temperature increased [Unknown]
  - Influenza like illness [Unknown]
  - Somnolence [Unknown]
  - Heart rate increased [Unknown]
